FAERS Safety Report 6376959-2 (Version None)
Quarter: 2009Q3

REPORT INFORMATION
  Report Type: 
  Country: None (occurrence: None)
  Receive Date: 20090925
  Receipt Date: 20090917
  Transmission Date: 20100115
  Serious: Yes (Hospitalization)
  Sender: FDA-Public Use
  Company Number: GB-ABBOTT-09P-167-0595211-00

PATIENT
  Sex: Male

DRUGS (12)
  1. RITONAVIR SOFT GELATIN CAPSULES [Suspect]
     Indication: HIV INFECTION
     Route: 048
     Dates: start: 20030101
  2. DARUNAVIR [Concomitant]
     Indication: HIV INFECTION
     Route: 048
     Dates: start: 20071002
  3. TRUVADA [Concomitant]
     Indication: HIV INFECTION
     Route: 048
     Dates: start: 20071002
  4. T20 [Concomitant]
     Indication: HIV INFECTION
     Route: 058
     Dates: start: 20040129
  5. TMC125 [Concomitant]
     Indication: HIV INFECTION
     Route: 048
     Dates: start: 20071002
  6. FLUOXETINE [Concomitant]
     Indication: ANTIDEPRESSANT THERAPY
     Route: 048
     Dates: start: 19770101
  7. ASPIRIN [Concomitant]
     Indication: ISCHAEMIC HEART DISEASE PROPHYLAXIS
     Route: 048
     Dates: start: 20040101
  8. VALPROATE SODIUM [Concomitant]
     Indication: CONVULSION
     Route: 048
     Dates: start: 20070810
  9. VALPROATE SODIUM [Concomitant]
     Indication: MUSCLE SPASMS
  10. CARBAMAZEPINE [Concomitant]
     Indication: MUSCLE SPASMS
     Route: 048
     Dates: start: 20020101, end: 20071004
  11. CARBAMAZEPINE [Concomitant]
     Indication: CONVULSION
  12. BACLOFEN [Concomitant]
     Indication: MUSCLE SPASMS
     Route: 048
     Dates: start: 20071004, end: 20071008

REACTIONS (3)
  - DISTURBANCE IN ATTENTION [None]
  - FEELING ABNORMAL [None]
  - MEMORY IMPAIRMENT [None]
